FAERS Safety Report 12069610 (Version 1)
Quarter: 2016Q1

REPORT INFORMATION
  Report Type: Spontaneous
  Country: US (occurrence: None)
  Receive Date: 20160211
  Receipt Date: 20160211
  Transmission Date: 20160526
  Serious: Yes (Disabling)
  Sender: FDA-Public Use
  Company Number: None

PATIENT
  Age: 64 Year
  Sex: Female
  Weight: 65.77 kg

DRUGS (9)
  1. PROLIA [Suspect]
     Active Substance: DENOSUMAB
     Indication: OSTEOPOROSIS
     Dates: start: 20140829
  2. VITAMIN D [Concomitant]
     Active Substance: CHOLECALCIFEROL
  3. DIARETICS [Concomitant]
  4. VITAMIN E [Concomitant]
     Active Substance: .ALPHA.-TOCOPHEROL
  5. VITAMIN C [Concomitant]
     Active Substance: ASCORBIC ACID
  6. VIT B [Concomitant]
     Active Substance: VITAMIN B
  7. COUPLE VITAMINS [Concomitant]
  8. VIT B - COMPLEX [Concomitant]
  9. ANTI REJECTION [Concomitant]

REACTIONS (4)
  - Tooth disorder [None]
  - Ill-defined disorder [None]
  - Kidney infection [None]
  - Frustration tolerance decreased [None]
